FAERS Safety Report 25113803 (Version 1)
Quarter: 2025Q1

REPORT INFORMATION
  Report Type: Spontaneous
  Country: AU (occurrence: AU)
  Receive Date: 20250324
  Receipt Date: 20250324
  Transmission Date: 20250409
  Serious: Yes (Other)
  Sender: REGENERON
  Company Number: AU-Medison-001111

PATIENT
  Age: 6 Decade
  Sex: Male

DRUGS (1)
  1. CEMIPLIMAB [Suspect]
     Active Substance: CEMIPLIMAB
     Indication: Squamous cell carcinoma

REACTIONS (1)
  - Sjogren^s syndrome [Unknown]
